FAERS Safety Report 6584840-9 (Version None)
Quarter: 2010Q1

REPORT INFORMATION
  Report Type: 
  Country: None (occurrence: None)
  Receive Date: 20100217
  Receipt Date: 20100204
  Transmission Date: 20100710
  Serious: Yes (Hospitalization, Other)
  Sender: FDA-Public Use
  Company Number: PHHY2010DZ08616

PATIENT
  Age: 30 Year
  Sex: Female
  Weight: 60 kg

DRUGS (1)
  1. ICL670A ICL+ [Suspect]
     Indication: ANAEMIA

REACTIONS (4)
  - ANAEMIA [None]
  - HAEMORRHAGIC DISORDER [None]
  - RESPIRATORY TRACT INFECTION [None]
  - THROMBOCYTOPENIA [None]
